FAERS Safety Report 5660855-X (Version None)
Quarter: 2008Q1

REPORT INFORMATION
  Report Type: 
  Country: None (occurrence: None)
  Receive Date: 20080311
  Receipt Date: 20080306
  Transmission Date: 20080703
  Serious: Yes (Hospitalization)
  Sender: FDA-Public Use
  Company Number: US-BRISTOL-MYERS SQUIBB COMPANY-14082531

PATIENT
  Age: 80 Year
  Sex: Male

DRUGS (3)
  1. ERBITUX [Suspect]
     Indication: NEOPLASM MALIGNANT
     Dosage: 400MG/M 2
     Route: 042
     Dates: start: 20080214, end: 20080214
  2. ERBITUX [Suspect]
     Indication: HYPOPHARYNGEAL CANCER
     Dosage: 400MG/M 2
     Route: 042
     Dates: start: 20080214, end: 20080214
  3. BENADRYL [Concomitant]
     Indication: PREMEDICATION

REACTIONS (1)
  - INFUSION RELATED REACTION [None]
